FAERS Safety Report 6383906-6 (Version None)
Quarter: 2009Q4

REPORT INFORMATION
  Report Type: 
  Country: None (occurrence: None)
  Receive Date: 20091001
  Receipt Date: 20090928
  Transmission Date: 20100525
  Serious: Yes (Other)
  Sender: FDA-Public Use
  Company Number: US-AVENTIS-200921026GDDC

PATIENT
  Age: 76 Year
  Sex: Male
  Weight: 95.9 kg

DRUGS (4)
  1. TAXOTERE [Suspect]
     Route: 042
     Dates: start: 20090610, end: 20090902
  2. PREDNISONE TAB [Suspect]
     Route: 048
     Dates: start: 20090610, end: 20090922
  3. CODE UNBROKEN [Suspect]
     Route: 048
     Dates: start: 20090610, end: 20090922
  4. DEXAMETHASONE 4MG TAB [Suspect]
     Dosage: DOSE: UNK
     Route: 048
     Dates: start: 20090610

REACTIONS (1)
  - CEREBRAL ISCHAEMIA [None]
